FAERS Safety Report 14199784 (Version 2)
Quarter: 2017Q4

REPORT INFORMATION
  Report Type: Spontaneous
  Country: JP (occurrence: JP)
  Receive Date: 20171117
  Receipt Date: 20171122
  Transmission Date: 20180321
  Serious: Yes (Other)
  Sender: FDA-Public Use
  Company Number: PHJP2017JP033020

PATIENT
  Age: 66 Year
  Sex: Male
  Weight: 56.6 kg

DRUGS (5)
  1. DUOTRAV COMBINATION OPHTHALMIC SOLUTION [Suspect]
     Active Substance: TIMOLOL MALEATE\TRAVOPROST
     Indication: OCULAR HYPERTENSION
     Dosage: 1 DRP, QD
     Route: 047
     Dates: start: 20170526, end: 20171024
  2. COSOPT [Concomitant]
     Active Substance: DORZOLAMIDE HYDROCHLORIDE\TIMOLOL MALEATE
     Indication: OCULAR HYPERTENSION
     Dosage: 1 DRP, BID
     Route: 047
     Dates: start: 20160509, end: 20160609
  3. TAPCOM [Concomitant]
     Active Substance: TAFLUPROST\TIMOLOL
     Indication: OCULAR HYPERTENSION
     Dosage: 1 DRP, QD
     Route: 047
     Dates: start: 20170222, end: 20170525
  4. MIKELAN LA [Concomitant]
     Active Substance: CARTEOLOL HYDROCHLORIDE
     Indication: OCULAR HYPERTENSION
     Dosage: 1 DRP, QD
     Route: 047
     Dates: start: 20160610, end: 20170221
  5. TIMOPTOL [Concomitant]
     Active Substance: TIMOLOL
     Indication: OCULAR HYPERTENSION
     Dosage: 1 DRP, QD
     Route: 047
     Dates: start: 20171024

REACTIONS (2)
  - Visual acuity reduced [Recovering/Resolving]
  - Cystoid macular oedema [Recovering/Resolving]

NARRATIVE: CASE EVENT DATE: 20170825
